FAERS Safety Report 7428721-7 (Version None)
Quarter: 2011Q2

REPORT INFORMATION
  Report Type: 
  Country: None (occurrence: None)
  Receive Date: 20110415
  Receipt Date: 20110415
  Transmission Date: 20111010
  Serious: Yes (Other)
  Sender: FDA-Public Use
  Company Number: None

PATIENT
  Age: 54 Year
  Sex: Female
  Weight: 79.8331 kg

DRUGS (1)
  1. SORAFENIB [Suspect]
     Indication: METASTASES TO CENTRAL NERVOUS SYSTEM
     Dosage: 600MG BID

REACTIONS (4)
  - HAEMOGLOBIN DECREASED [None]
  - BLOOD COUNT ABNORMAL [None]
  - REFUSAL OF TREATMENT BY PATIENT [None]
  - HERPES ZOSTER [None]
